FAERS Safety Report 9184620 (Version 1)
Quarter: 2013Q1

REPORT INFORMATION
  Report Type: Report from Study
  Country: US (occurrence: US)
  Receive Date: 20130324
  Receipt Date: 20130324
  Transmission Date: 20140127
  Serious: Yes (Other)
  Sender: FDA-Public Use
  Company Number: US-ABBOTT-13P-163-1063412-00

PATIENT
  Sex: Female

DRUGS (6)
  1. HUMIRA [Suspect]
     Indication: RHEUMATOID ARTHRITIS
     Dates: start: 200610, end: 201207
  2. HUMIRA [Suspect]
     Dates: start: 201303
  3. SYNTHROID [Suspect]
     Indication: HYPOTHYROIDISM
  4. PREDNISONE [Concomitant]
     Indication: RHEUMATOID ARTHRITIS
  5. PRENATAL VITAMINS [Concomitant]
     Indication: VITAMIN SUPPLEMENTATION
  6. METFORMIN [Concomitant]
     Indication: PRODUCT USED FOR UNKNOWN INDICATION

REACTIONS (4)
  - Polycystic ovaries [Not Recovered/Not Resolved]
  - Hypothyroidism [Recovered/Resolved]
  - Suppressed lactation [Recovered/Resolved]
  - Drug ineffective [Recovered/Resolved]
